FAERS Safety Report 25970685 (Version 1)
Quarter: 2025Q4

REPORT INFORMATION
  Report Type: Spontaneous
  Country: JP (occurrence: JP)
  Receive Date: 20251028
  Receipt Date: 20251028
  Transmission Date: 20260118
  Serious: Yes (Death, Hospitalization, Other)
  Sender: ALEXION PHARMACEUTICALS
  Company Number: JP-ASTRAZENECA-250009070_011620_P_1

PATIENT
  Age: 54 Year
  Sex: Female
  Weight: 70.3 kg

DRUGS (1)
  1. LYNPARZA [Suspect]
     Active Substance: OLAPARIB
     Indication: Ovarian cancer
     Dosage: 300 MILLIGRAM, QD
     Dates: start: 20230115, end: 20241003

REACTIONS (8)
  - Myelodysplastic syndrome [Fatal]
  - Anaemia [Not Recovered/Not Resolved]
  - Seizure [Recovering/Resolving]
  - Proteinuria [Unknown]
  - Haematochezia [Unknown]
  - Pelvic abscess [Unknown]
  - Metastases to peritoneum [Unknown]
  - Metastases to central nervous system [Unknown]

NARRATIVE: CASE EVENT DATE: 20241003
